FAERS Safety Report 6524903-7 (Version None)
Quarter: 2009Q4

REPORT INFORMATION
  Report Type: 
  Country: None (occurrence: None)
  Receive Date: 20091222
  Receipt Date: 20091208
  Transmission Date: 20100525
  Serious: Yes (Other)
  Sender: FDA-Public Use
  Company Number: 1000010834

PATIENT
  Age: 39 Year
  Sex: Female
  Weight: 56 kg

DRUGS (6)
  1. LEXAPRO [Suspect]
     Indication: ANXIETY
     Dosage: 10 MG (10 MG, 1 IN 1 D), ORAL, 5 MG (5 MG, 1 IN 1 D), ORAL
     Route: 048
  2. LEXAPRO [Suspect]
     Indication: DEPRESSION
     Dosage: 10 MG (10 MG, 1 IN 1 D), ORAL, 5 MG (5 MG, 1 IN 1 D), ORAL
     Route: 048
  3. LEXAPRO [Suspect]
     Indication: ANXIETY
     Dosage: 5 MG (5 MG, 1 IN 1 D), ORAL
     Route: 048
  4. LEXAPRO [Suspect]
     Indication: DEPRESSION
     Dosage: 5 MG (5 MG, 1 IN 1 D), ORAL
     Route: 048
  5. LEXAPRO [Suspect]
     Indication: ANXIETY
     Dosage: 5 MG, (5 MG, 1 IN 1 D), ORAL
     Route: 048
  6. LEXAPRO [Suspect]
     Indication: DEPRESSION
     Dosage: 5 MG, (5 MG, 1 IN 1 D), ORAL
     Route: 048

REACTIONS (12)
  - BREAST TENDERNESS [None]
  - CONTUSION [None]
  - DIZZINESS [None]
  - GALACTORRHOEA [None]
  - LEUKOPENIA [None]
  - MASTITIS [None]
  - OEDEMA PERIPHERAL [None]
  - PRURITUS GENERALISED [None]
  - PYREXIA [None]
  - RASH ERYTHEMATOUS [None]
  - SYNCOPE [None]
  - THROMBOCYTOPENIA [None]
